FAERS Safety Report 15826578 (Version 1)
Quarter: 2019Q1

REPORT INFORMATION
  Report Type: Spontaneous
  Country: US (occurrence: US)
  Receive Date: 20190115
  Receipt Date: 20190115
  Transmission Date: 20190417
  Serious: No
  Sender: FDA-Public Use
  Company Number: US-BAUSCH-BL-2017-006657

PATIENT
  Age: 73 Year
  Sex: Female

DRUGS (3)
  1. ZYLET [Suspect]
     Active Substance: LOTEPREDNOL ETABONATE\TOBRAMYCIN
     Indication: MEIBOMIAN GLAND DYSFUNCTION
     Dosage: FOR 3 DAYS IN BOTH THE EYES
     Route: 047
     Dates: start: 201703
  2. PREDNISONE. [Concomitant]
     Active Substance: PREDNISONE
     Indication: AUTOIMMUNE DISORDER
     Route: 048
  3. ZYLET [Suspect]
     Active Substance: LOTEPREDNOL ETABONATE\TOBRAMYCIN
     Dosage: FOR 3 DAYS IN BOTH THE EYES
     Route: 047
     Dates: start: 201703, end: 20170309

REACTIONS (11)
  - Blepharitis [Unknown]
  - Erythema of eyelid [Recovering/Resolving]
  - Treatment noncompliance [Unknown]
  - Conjunctivitis [Unknown]
  - Eye colour change [Unknown]
  - Crying [Unknown]
  - Instillation site pain [Recovering/Resolving]
  - Ocular hyperaemia [Unknown]
  - Vision blurred [Unknown]
  - Headache [Recovering/Resolving]
  - Lacrimation increased [Unknown]

NARRATIVE: CASE EVENT DATE: 201703
